FAERS Safety Report 5902893-5 (Version None)
Quarter: 2008Q3

REPORT INFORMATION
  Report Type: 
  Country: None (occurrence: None)
  Receive Date: 20080930
  Receipt Date: 20080925
  Transmission Date: 20090109
  Serious: Yes (Death, Other)
  Sender: FDA-Public Use
  Company Number: PHBS2008US05824

PATIENT
  Age: 60 Year
  Sex: Male

DRUGS (4)
  1. CYCLOSPORINE [Suspect]
     Indication: LUNG TRANSPLANT
  2. AZATHIOPRINE [Suspect]
     Indication: LUNG TRANSPLANT
  3. PREDNISOLONE [Suspect]
     Indication: LUNG TRANSPLANT
     Dosage: 15 MG
  4. SULFAMETHOXYPYRAZINE/TRIMETHOPRIM [Concomitant]
     Indication: ANTIFUNGAL PROPHYLAXIS
     Dosage: DOUBLE-STRENGTH

REACTIONS (5)
  - ABSCESS LIMB [None]
  - BRAIN ABSCESS [None]
  - LUNG TRANSPLANT REJECTION [None]
  - NOCARDIOSIS [None]
  - PNEUMONIA ASPIRATION [None]
